FAERS Safety Report 25230229 (Version 1)
Quarter: 2025Q2

REPORT INFORMATION
  Report Type: Spontaneous
  Country: US (occurrence: US)
  Receive Date: 20250423
  Receipt Date: 20250423
  Transmission Date: 20250717
  Serious: Yes (Other)
  Sender: JOHNSON AND JOHNSON
  Company Number: US-JNJFOC-20250423476

PATIENT
  Age: 41 Year

DRUGS (6)
  1. TALVEY [Suspect]
     Active Substance: TALQUETAMAB-TGVS
     Indication: Product used for unknown indication
  2. TALVEY [Suspect]
     Active Substance: TALQUETAMAB-TGVS
  3. TALVEY [Suspect]
     Active Substance: TALQUETAMAB-TGVS
     Dates: start: 20250326
  4. TALVEY [Suspect]
     Active Substance: TALQUETAMAB-TGVS
     Dates: start: 20250328
  5. TALVEY [Suspect]
     Active Substance: TALQUETAMAB-TGVS
     Dates: start: 20250330
  6. TALVEY [Suspect]
     Active Substance: TALQUETAMAB-TGVS
     Dates: start: 20250402

REACTIONS (1)
  - Cytokine release syndrome [Recovered/Resolved with Sequelae]

NARRATIVE: CASE EVENT DATE: 20250326
